FAERS Safety Report 19673382 (Version 2)
Quarter: 2021Q3

REPORT INFORMATION
  Report Type: Spontaneous
  Country: GB (occurrence: GB)
  Receive Date: 20210809
  Receipt Date: 20210823
  Transmission Date: 20211014
  Serious: Yes (Hospitalization, Other)
  Sender: FDA-Public Use
  Company Number: GB-AUROBINDO-AUR-APL-2021-034275

PATIENT
  Age: 7 Decade
  Sex: Male

DRUGS (7)
  1. LINEZOLID. [Suspect]
     Active Substance: LINEZOLID
     Indication: MYCOBACTERIUM CHELONAE INFECTION
     Dosage: 600 MILLIGRAM
     Route: 042
  2. AZITHROMYCIN ANHYDROUS. [Concomitant]
     Active Substance: AZITHROMYCIN ANHYDROUS
     Indication: COELIAC DISEASE
     Dosage: UNK
     Route: 065
  3. CLARITHROMYCIN. [Concomitant]
     Active Substance: CLARITHROMYCIN
     Indication: MYCOBACTERIUM CHELONAE INFECTION
     Dosage: 500 MILLIGRAM
     Route: 048
  4. TOBRAMYCIN. [Concomitant]
     Active Substance: TOBRAMYCIN
     Indication: MYCOBACTERIUM CHELONAE INFECTION
     Dosage: 3 MILLIGRAM/KILOGRAM, ONCE A DAY
     Route: 042
  5. TIGECYCLINE. [Concomitant]
     Active Substance: TIGECYCLINE
     Indication: EVIDENCE BASED TREATMENT
  6. TIGECYCLINE. [Concomitant]
     Active Substance: TIGECYCLINE
     Indication: MYCOBACTERIUM CHELONAE INFECTION
     Dosage: 50 MILLIGRAM
     Route: 042
  7. TEDIZOLID [Suspect]
     Active Substance: TEDIZOLID
     Indication: MYCOBACTERIUM CHELONAE INFECTION
     Dosage: 200 MILLIGRAM, ONCE A DAY
     Route: 042

REACTIONS (7)
  - Toxicity to various agents [Recovered/Resolved]
  - Platelet count decreased [Recovered/Resolved]
  - Drug tolerance [Recovered/Resolved]
  - Peripheral motor neuropathy [Not Recovered/Not Resolved]
  - Thrombocytopenia [Recovered/Resolved]
  - Peroneal nerve palsy [Not Recovered/Not Resolved]
  - Peripheral sensory neuropathy [Not Recovered/Not Resolved]
